FAERS Safety Report 20260980 (Version 1)
Quarter: 2021Q4

REPORT INFORMATION
  Report Type: Spontaneous
  Country: HR (occurrence: HR)
  Receive Date: 20211230
  Receipt Date: 20211230
  Transmission Date: 20220303
  Serious: Yes (Other)
  Sender: FDA-Public Use
  Company Number: HR-EMA-DD-20211216-varghese_v-114458

PATIENT
  Sex: Male

DRUGS (4)
  1. ADALIMUMAB [Suspect]
     Active Substance: ADALIMUMAB
     Indication: Juvenile idiopathic arthritis
     Route: 058
  2. METHOTREXATE [Suspect]
     Active Substance: METHOTREXATE
     Indication: Juvenile idiopathic arthritis
     Dosage: UNKNOWN, INITIALLY RECEIVED FOR ALMOST 10 YEARS AND THEN DISCONTINUED
     Route: 065
  3. METHOTREXATE [Suspect]
     Active Substance: METHOTREXATE
     Dosage: UNKNOWN
     Route: 065
  4. HUMAN IMMUNOGLOBULIN G [Concomitant]
     Active Substance: HUMAN IMMUNOGLOBULIN G
     Indication: Juvenile idiopathic arthritis
     Dosage: UNKNOWN
     Route: 042

REACTIONS (4)
  - Interstitial lung disease [Recovering/Resolving]
  - Lymphadenopathy mediastinal [Recovering/Resolving]
  - Psoriasis [Recovering/Resolving]
  - Weight decreased [Recovering/Resolving]
